FAERS Safety Report 7115397-1 (Version None)
Quarter: 2010Q4

REPORT INFORMATION
  Report Type: 
  Country: None (occurrence: None)
  Receive Date: 20101122
  Receipt Date: 20101115
  Transmission Date: 20110411
  Serious: Yes (Other)
  Sender: FDA-Public Use
  Company Number: US-B.I. PHARMACEUTICALS,INC./RIDGEFIELD-2010-BP-12810BP

PATIENT
  Sex: Female

DRUGS (1)
  1. SPIRIVA [Suspect]

REACTIONS (3)
  - CARDIAC FAILURE [None]
  - SYSTEMIC LUPUS ERYTHEMATOSUS [None]
  - VISUAL IMPAIRMENT [None]
